FAERS Safety Report 19808352 (Version 4)
Quarter: 2021Q4

REPORT INFORMATION
  Report Type: Spontaneous
  Country: DE (occurrence: DE)
  Receive Date: 20210909
  Receipt Date: 20211108
  Transmission Date: 20220303
  Serious: Yes (Death, Hospitalization, Other)
  Sender: FDA-Public Use
  Company Number: DE-ASTELLAS-2021US033466

PATIENT
  Age: 65 Year
  Sex: Male

DRUGS (4)
  1. XTANDI [Suspect]
     Active Substance: ENZALUTAMIDE
     Indication: Product used for unknown indication
     Dosage: UNK UNK, UNKNOWN FREQ.
     Route: 065
  2. METAMIZOL [Suspect]
     Active Substance: METAMIZOLE SODIUM
     Indication: Pain
     Dosage: UNK, REGULARLY
     Route: 048
     Dates: end: 20210825
  3. TRENANTONE [Concomitant]
     Active Substance: LEUPROLIDE ACETATE
     Indication: Prostate cancer
     Dosage: UNK UNK, UNKNOWN FREQ.
     Route: 058
     Dates: start: 202010
  4. XGEVA [Concomitant]
     Active Substance: DENOSUMAB
     Indication: Prostate cancer
     Dosage: UNK UNK, UNKNOWN FREQ.
     Route: 058
     Dates: start: 202010

REACTIONS (13)
  - Malignant neoplasm progression [Fatal]
  - Leukopenia [Recovering/Resolving]
  - Infection [Recovered/Resolved]
  - Respiratory disorder [Unknown]
  - Dysphagia [Unknown]
  - Pneumonia [Unknown]
  - Gastritis [Unknown]
  - Helicobacter gastritis [Unknown]
  - Duodenal ulcer [Unknown]
  - Clostridium difficile colitis [Unknown]
  - General physical health deterioration [Unknown]
  - Pyrexia [Unknown]
  - Cough [Unknown]

NARRATIVE: CASE EVENT DATE: 20210816
